FAERS Safety Report 7661755-6 (Version None)
Quarter: 2011Q3

REPORT INFORMATION
  Report Type: 
  Country: None (occurrence: None)
  Receive Date: 20110805
  Receipt Date: 20101025
  Transmission Date: 20111222
  Serious: No
  Sender: FDA-Public Use
  Company Number: US-ABBOTT-10P-163-0681187-00

PATIENT
  Sex: Female
  Weight: 99.88 kg

DRUGS (8)
  1. NEXIUM [Concomitant]
     Indication: GASTRIC DISORDER
  2. NIASPAN [Suspect]
     Indication: BLOOD CHOLESTEROL INCREASED
     Dates: start: 20101022
  3. CELEBREX [Concomitant]
     Indication: ARTHRITIS
  4. DEPAKOTE [Concomitant]
     Indication: BIPOLAR DISORDER
  5. LISINOPRIL [Concomitant]
     Indication: BLOOD PRESSURE
  6. CITALOPRAM HYDROBROMIDE [Concomitant]
     Indication: BIPOLAR DISORDER
  7. METFORMIN HCL [Concomitant]
     Indication: DIABETES MELLITUS
  8. LIPITOR [Concomitant]
     Indication: BLOOD CHOLESTEROL

REACTIONS (3)
  - PARAESTHESIA [None]
  - RASH MACULAR [None]
  - DIARRHOEA [None]
